FAERS Safety Report 22235023 (Version 1)
Quarter: 2023Q2

REPORT INFORMATION
  Report Type: Spontaneous
  Country: US (occurrence: None)
  Receive Date: 20230419
  Receipt Date: 20230419
  Transmission Date: 20230722
  Serious: Yes (Other)
  Sender: FDA-Public Use
  Company Number: None

PATIENT
  Age: 75 Year
  Sex: Male
  Weight: 83 kg

DRUGS (1)
  1. EMPAGLIFLOZIN [Suspect]
     Active Substance: EMPAGLIFLOZIN
     Dosage: 10 MG DAILY ORAL
     Route: 048
     Dates: start: 20221108

REACTIONS (2)
  - Acute myocardial infarction [None]
  - Diabetic ketoacidosis [None]

NARRATIVE: CASE EVENT DATE: 20230414
